FAERS Safety Report 20115959 (Version 1)
Quarter: 2021Q4

REPORT INFORMATION
  Report Type: Report from Study
  Country: CA (occurrence: CA)
  Receive Date: 20211126
  Receipt Date: 20211126
  Transmission Date: 20220304
  Serious: Yes (Hospitalization)
  Sender: FDA-Public Use
  Company Number: CA-ABBVIE-21K-028-4176592-00

PATIENT
  Age: 41 Year

DRUGS (7)
  1. RINVOQ [Suspect]
     Active Substance: UPADACITINIB
     Indication: Rheumatoid arthritis
     Route: 048
     Dates: start: 20210818
  2. METHOTREXATE [Concomitant]
     Active Substance: METHOTREXATE
     Indication: Product used for unknown indication
     Dates: start: 20210216
  3. FOLIC ACID [Concomitant]
     Active Substance: FOLIC ACID
     Indication: Product used for unknown indication
     Dates: start: 20210104
  4. TEGRETOL [Concomitant]
     Active Substance: CARBAMAZEPINE
     Indication: Product used for unknown indication
     Dates: start: 1993
  5. ADVIL [Concomitant]
     Active Substance: IBUPROFEN
     Indication: Product used for unknown indication
     Dates: start: 202101
  6. PALIPERIDONE [Concomitant]
     Active Substance: PALIPERIDONE
     Indication: Product used for unknown indication
     Dates: start: 20211013
  7. MIRTAZAPINE [Concomitant]
     Active Substance: MIRTAZAPINE
     Indication: Product used for unknown indication
     Dates: start: 20211013

REACTIONS (2)
  - Suicide attempt [Recovering/Resolving]
  - Schizoaffective disorder [Recovering/Resolving]

NARRATIVE: CASE EVENT DATE: 20211013
